FAERS Safety Report 22871575 (Version 3)
Quarter: 2023Q4

REPORT INFORMATION
  Report Type: Report from Study
  Country: US (occurrence: US)
  Receive Date: 20230828
  Receipt Date: 20231111
  Transmission Date: 20240110
  Serious: Yes (Other)
  Sender: FDA-Public Use
  Company Number: US-UCBSA-2023025327

PATIENT
  Sex: Female

DRUGS (5)
  1. CERTOLIZUMAB PEGOL [Suspect]
     Active Substance: CERTOLIZUMAB PEGOL
     Indication: Rheumatoid arthritis
     Dosage: 200 MILLIGRAM, EV 2 WEEKS(QOW)
     Route: 058
     Dates: start: 20230502
  2. CERTOLIZUMAB PEGOL [Suspect]
     Active Substance: CERTOLIZUMAB PEGOL
     Dosage: 400 MILLIGRAM, EV 4 WEEKS
     Route: 058
  3. CERTOLIZUMAB PEGOL [Suspect]
     Active Substance: CERTOLIZUMAB PEGOL
     Dosage: 200 MILLIGRAM, EV 2 WEEKS(QOW)
     Route: 058
  4. INFLUENZA VIRUS VACCINE [Concomitant]
     Active Substance: INFLUENZA VIRUS VACCINE
     Indication: Influenza immunisation
     Dosage: UNK
  5. UNSPECIFIED INGREDIENT [Concomitant]
     Active Substance: UNSPECIFIED INGREDIENT
     Indication: Respiratory syncytial virus immunisation
     Dosage: UNK

REACTIONS (12)
  - Rheumatoid arthritis [Not Recovered/Not Resolved]
  - Injection site pain [Not Recovered/Not Resolved]
  - Rash pruritic [Not Recovered/Not Resolved]
  - Nasopharyngitis [Not Recovered/Not Resolved]
  - Injection site bruising [Not Recovered/Not Resolved]
  - Needle issue [Unknown]
  - Product quality issue [Unknown]
  - Off label use [Unknown]
  - Drug ineffective [Unknown]
  - Intentional dose omission [Unknown]
  - Influenza immunisation [Unknown]
  - Respiratory syncytial virus immunisation [Unknown]

NARRATIVE: CASE EVENT DATE: 20230101
